FAERS Safety Report 5715717-6 (Version None)
Quarter: 2008Q2

REPORT INFORMATION
  Report Type: 
  Country: None (occurrence: None)
  Receive Date: 20080423
  Receipt Date: 20080423
  Transmission Date: 20081010
  Serious: Yes (Hospitalization)
  Sender: FDA-Public Use
  Company Number: None

PATIENT
  Age: 61 Year
  Sex: Male

DRUGS (2)
  1. SIMVASTATIN [Suspect]
     Dosage: 80 MG EVERY DAY PO
     Route: 048
     Dates: start: 20060110, end: 20080417
  2. GEMFIBROZIL [Suspect]
     Dosage: 600 MG BID PO
     Route: 048
     Dates: start: 19970423, end: 20080418

REACTIONS (5)
  - EXPIRED DRUG ADMINISTERED [None]
  - MUSCULAR WEAKNESS [None]
  - MYOSITIS [None]
  - PAIN IN EXTREMITY [None]
  - RENAL FAILURE ACUTE [None]
